FAERS Safety Report 18508141 (Version 1)
Quarter: 2020Q4

REPORT INFORMATION
  Report Type: Report from Study
  Country: IT (occurrence: IT)
  Receive Date: 20201116
  Receipt Date: 20201116
  Transmission Date: 20210114
  Serious: Yes (Hospitalization)
  Sender: FDA-Public Use
  Company Number: IT-TAKEDA-2020TUS050307

PATIENT
  Age: 78 Year
  Sex: Male

DRUGS (4)
  1. BENDAMUSTINE [Suspect]
     Active Substance: BENDAMUSTINE
     Indication: WALDENSTROM^S MACROGLOBULINAEMIA
     Dosage: 158.4 MILLIGRAM
     Route: 042
     Dates: start: 20170112
  2. RITUXIMAB. [Suspect]
     Active Substance: RITUXIMAB
     Indication: WALDENSTROM^S MACROGLOBULINAEMIA
     Dosage: 660 MILLIGRAM
     Route: 042
     Dates: start: 20170119
  3. RITUXIMAB. [Suspect]
     Active Substance: RITUXIMAB
     Dosage: 660 MILLIGRAM
     Route: 042
     Dates: start: 20170620, end: 20170711
  4. BORTEZOMIB. [Suspect]
     Active Substance: BORTEZOMIB
     Indication: WALDENSTROM^S MACROGLOBULINAEMIA
     Dosage: 2.34 MILLIGRAM
     Route: 042
     Dates: start: 20170112

REACTIONS (1)
  - Escherichia infection [Recovered/Resolved]

NARRATIVE: CASE EVENT DATE: 20190908
